FAERS Safety Report 18360951 (Version 1)
Quarter: 2020Q4

REPORT INFORMATION
  Report Type: Spontaneous
  Country: GR (occurrence: GR)
  Receive Date: 20201008
  Receipt Date: 20201008
  Transmission Date: 20210114
  Serious: Yes (Death, Life-Threatening, Other)
  Sender: FDA-Public Use
  Company Number: GR-MYLANLABS-2020M1084459

PATIENT
  Age: 72 Year
  Sex: Male

DRUGS (1)
  1. CINACALCET HYDROCHLORIDE. [Suspect]
     Active Substance: CINACALCET HYDROCHLORIDE
     Indication: HYPERPARATHYROIDISM
     Dosage: UNK
     Route: 065

REACTIONS (10)
  - Death [Fatal]
  - Renal impairment [Unknown]
  - Acute respiratory distress syndrome [Unknown]
  - Hyperbilirubinaemia [Unknown]
  - Hyperparathyroidism [Unknown]
  - Transaminases increased [Unknown]
  - Drug ineffective [Unknown]
  - Leukocytosis [Unknown]
  - Amylase increased [Unknown]
  - Inflammatory marker increased [Unknown]
